FAERS Safety Report 5254364-X (Version None)
Quarter: 2007Q1

REPORT INFORMATION
  Report Type: 
  Country: None (occurrence: None)
  Receive Date: 20070302
  Receipt Date: 20070222
  Transmission Date: 20070707
  Serious: Yes (Other)
  Sender: FDA-Public Use
  Company Number: AT-ABBOTT-07P-009-0360114-00

PATIENT
  Age: 42 Year
  Sex: Male

DRUGS (13)
  1. DEPAKENE [Suspect]
     Indication: DRUG USE FOR UNKNOWN INDICATION
     Route: 048
     Dates: start: 20061018, end: 20061019
  2. DEPAKENE [Suspect]
     Route: 048
     Dates: start: 20061020, end: 20061115
  3. QUETIAPINE FUMARATE [Interacting]
     Indication: DRUG USE FOR UNKNOWN INDICATION
     Route: 048
     Dates: start: 20061018, end: 20061018
  4. QUETIAPINE FUMARATE [Interacting]
     Route: 048
     Dates: start: 20061019, end: 20061019
  5. QUETIAPINE FUMARATE [Interacting]
     Route: 048
     Dates: start: 20061020, end: 20061022
  6. QUETIAPINE FUMARATE [Interacting]
     Route: 048
     Dates: start: 20061023, end: 20061122
  7. AMLODIPINE BESYLATE [Concomitant]
     Indication: DRUG USE FOR UNKNOWN INDICATION
     Route: 048
     Dates: start: 20061018
  8. PRAXITEN [Concomitant]
     Indication: DRUG USE FOR UNKNOWN INDICATION
     Route: 048
     Dates: start: 20061018, end: 20061019
  9. PRAXITEN [Concomitant]
     Route: 048
     Dates: start: 20061020, end: 20061105
  10. LITHIUM CARBONATE [Concomitant]
     Indication: DRUG USE FOR UNKNOWN INDICATION
     Route: 048
     Dates: start: 20061018, end: 20061023
  11. LITHIUM CARBONATE [Concomitant]
     Route: 048
     Dates: start: 20061024, end: 20061024
  12. LITHIUM CARBONATE [Concomitant]
     Route: 048
     Dates: start: 20061025, end: 20061026
  13. LITHIUM CARBONATE [Concomitant]
     Route: 048
     Dates: start: 20061027, end: 20061028

REACTIONS (4)
  - DRUG INTERACTION [None]
  - DYSURIA [None]
  - MICTURITION URGENCY [None]
  - RESIDUAL URINE VOLUME [None]
